FAERS Safety Report 6568247-6 (Version None)
Quarter: 2010Q1

REPORT INFORMATION
  Report Type: 
  Country: None (occurrence: None)
  Receive Date: 20100203
  Receipt Date: 20100125
  Transmission Date: 20100710
  Serious: Yes (Hospitalization)
  Sender: FDA-Public Use
  Company Number: CA-ELI_LILLY_AND_COMPANY-CA201001005067

PATIENT
  Age: 80 Year
  Sex: Female

DRUGS (10)
  1. FORTEO [Suspect]
     Indication: OSTEOPOROSIS
     Dosage: 20 UG, DAILY (1/D)
     Route: 058
     Dates: start: 20100109, end: 20100123
  2. RHOVANE [Concomitant]
  3. CRESTOR [Concomitant]
     Dosage: 20 MG, UNK
  4. NOVO-METOPROL [Concomitant]
  5. NORVASC [Concomitant]
     Dosage: 10 MG, UNK
  6. COZAAR [Concomitant]
  7. ASPIRIN [Concomitant]
     Dosage: 81 MG, UNK
  8. VITAMIN C [Concomitant]
  9. VITAMIN D [Concomitant]
  10. VITAMIN B-12 [Concomitant]

REACTIONS (3)
  - BRONCHITIS [None]
  - COUGH [None]
  - DYSPNOEA [None]
